FAERS Safety Report 18331310 (Version 6)
Quarter: 2021Q4

REPORT INFORMATION
  Report Type: Spontaneous
  Country: US (occurrence: US)
  Receive Date: 20200930
  Receipt Date: 20211115
  Transmission Date: 20220303
  Serious: Yes (Death, Other)
  Sender: FDA-Public Use
  Company Number: US-PFIZER INC-2020372856

PATIENT
  Age: 70 Year
  Sex: Male

DRUGS (2)
  1. XELJANZ XR [Suspect]
     Active Substance: TOFACITINIB CITRATE
     Indication: Psoriatic arthropathy
     Dosage: 11 MG, DAILY
     Dates: start: 2019
  2. XELJANZ XR [Suspect]
     Active Substance: TOFACITINIB CITRATE
     Dosage: 11 MG, DAILY
     Dates: start: 20200209

REACTIONS (9)
  - Death [Fatal]
  - Lung neoplasm malignant [Unknown]
  - Pulmonary mass [Unknown]
  - Swelling [Unknown]
  - Toothache [Unknown]
  - Headache [Unknown]
  - Lymphadenopathy [Unknown]
  - Prostatic disorder [Unknown]
  - Anxiety [Unknown]

NARRATIVE: CASE EVENT DATE: 20200101
